FAERS Safety Report 18301031 (Version 1)
Quarter: 2020Q3

REPORT INFORMATION
  Report Type: Report from Study
  Country: IN (occurrence: IN)
  Receive Date: 20200923
  Receipt Date: 20200923
  Transmission Date: 20201103
  Serious: Yes (Death, Hospitalization)
  Sender: FDA-Public Use
  Company Number: NVSC2020IN258878

PATIENT
  Age: 80 Year
  Sex: Female

DRUGS (1)
  1. KRYXANA [Suspect]
     Active Substance: RIBOCICLIB
     Indication: BREAST CANCER METASTATIC
     Dosage: 400 MG, QD
     Route: 048
     Dates: start: 20190814

REACTIONS (3)
  - Myocardial infarction [Fatal]
  - Vomiting [Fatal]
  - Heart rate decreased [Fatal]

NARRATIVE: CASE EVENT DATE: 20200909
